FAERS Safety Report 17668162 (Version 1)
Quarter: 2020Q2

REPORT INFORMATION
  Report Type: Spontaneous
  Country: US (occurrence: US)
  Receive Date: 20200414
  Receipt Date: 20200414
  Transmission Date: 20200713
  Serious: No
  Sender: FDA-Public Use
  Company Number: US-EMD SERONO-9157387

PATIENT
  Sex: Female

DRUGS (1)
  1. REBIF [Suspect]
     Active Substance: INTERFERON BETA-1A
     Indication: MULTIPLE SCLEROSIS
     Route: 058
     Dates: start: 20200301

REACTIONS (3)
  - Arthralgia [Unknown]
  - Affective disorder [Unknown]
  - Pain [Unknown]

NARRATIVE: CASE EVENT DATE: 2020
